FAERS Safety Report 8663574 (Version 2)
Quarter: 2013Q1

REPORT INFORMATION
  Report Type: Report from Study
  Country: JP (occurrence: JP)
  Receive Date: 20120713
  Receipt Date: 20130319
  Transmission Date: 20140127
  Serious: Yes (Death)
  Sender: FDA-Public Use
  Company Number: PHHY2012JP060039

PATIENT
  Sex: Male

DRUGS (6)
  1. TASIGNA [Suspect]
     Indication: CHRONIC MYELOID LEUKAEMIA
     Dosage: 400 MG, DAILY
     Route: 048
     Dates: start: 20110422, end: 20120106
  2. DEPAS [Concomitant]
     Dosage: 2.5 MG
     Route: 048
     Dates: start: 20110422, end: 20120106
  3. ROHYPNOL [Concomitant]
     Dosage: 2 MG
     Route: 048
     Dates: start: 20110422, end: 20120106
  4. INDERAL [Concomitant]
     Dosage: 40 MG
     Route: 048
     Dates: start: 20110422, end: 20120106
  5. SOTACOR [Concomitant]
     Dosage: 240 MG
     Route: 048
     Dates: start: 20110422, end: 20120106
  6. FRANDOL S [Concomitant]

REACTIONS (1)
  - Death [Fatal]
